FAERS Safety Report 10254269 (Version 1)
Quarter: 2014Q2

REPORT INFORMATION
  Report Type: Spontaneous
  Country: JP (occurrence: JP)
  Receive Date: 20140624
  Receipt Date: 20140624
  Transmission Date: 20141212
  Serious: Yes (Other)
  Sender: FDA-Public Use
  Company Number: JP-ROCHE-1419038

PATIENT
  Age: 44 Year
  Sex: Female

DRUGS (4)
  1. LUCENTIS [Suspect]
     Indication: AGE-RELATED MACULAR DEGENERATION
     Route: 050
     Dates: start: 20140224
  2. LUCENTIS [Suspect]
     Dosage: ONGOING
     Route: 050
     Dates: start: 20140331
  3. PREDONINE [Concomitant]
     Dosage: 8 TABLETS FOR 1 WEEK
     Route: 065
  4. PREDONINE [Concomitant]
     Dosage: 6 TABLETS FOR 5 DAYS
     Route: 065

REACTIONS (7)
  - Visual field defect [Not Recovered/Not Resolved]
  - Visual acuity reduced [Recovering/Resolving]
  - Retinogram abnormal [Unknown]
  - Optical coherence tomography abnormal [Recovering/Resolving]
  - Retinal injury [Unknown]
  - Visual impairment [Unknown]
  - Eye pain [Recovered/Resolved]
